FAERS Safety Report 23153948 (Version 1)
Quarter: 2023Q4

REPORT INFORMATION
  Report Type: Spontaneous
  Country: US (occurrence: None)
  Receive Date: 20231106
  Receipt Date: 20231106
  Transmission Date: 20240110
  Serious: No
  Sender: FDA-Public Use
  Company Number: None

PATIENT
  Sex: Female

DRUGS (1)
  1. ZINC GLUCONATE [Suspect]
     Active Substance: ZINC GLUCONATE
     Indication: Nasopharyngitis

REACTIONS (1)
  - Product use complaint [None]
